FAERS Safety Report 18072734 (Version 2)
Quarter: 2022Q1

REPORT INFORMATION
  Report Type: Spontaneous
  Country: US (occurrence: US)
  Receive Date: 20200727
  Receipt Date: 20220210
  Transmission Date: 20220423
  Serious: Yes (Other)
  Sender: FDA-Public Use
  Company Number: US-SA-2020SA190658

PATIENT
  Age: 57 Year
  Sex: Female

DRUGS (3)
  1. KEVZARA [Suspect]
     Active Substance: SARILUMAB
     Dosage: 200 MG (FREQUENCY: OTHER)
     Route: 058
     Dates: start: 20200317, end: 20200720
  2. KEVZARA [Suspect]
     Active Substance: SARILUMAB
     Dosage: 150 MG
     Route: 058
     Dates: start: 202007
  3. KEVZARA [Suspect]
     Active Substance: SARILUMAB
     Dosage: 150 UNK
     Route: 058
     Dates: start: 20211014

REACTIONS (1)
  - Neutropenia [Unknown]

NARRATIVE: CASE EVENT DATE: 20200601
